FAERS Safety Report 4548566-5 (Version None)
Quarter: 2005Q1

REPORT INFORMATION
  Report Type: 
  Country: None (occurrence: None)
  Receive Date: 20050106
  Receipt Date: 20041229
  Transmission Date: 20050727
  Serious: Yes (Hospitalization, Other)
  Sender: FDA-Public Use
  Company Number: KII-2004-0014478

PATIENT
  Age: 41 Year
  Sex: Male

DRUGS (1)
  1. OXYCONTIN [Suspect]
     Indication: PAIN
     Dosage: ORAL
     Route: 048

REACTIONS (6)
  - DISORIENTATION [None]
  - HYPOTENSION [None]
  - OVERDOSE [None]
  - RESPIRATORY DISTRESS [None]
  - SEPSIS [None]
  - TACHYCARDIA [None]
